FAERS Safety Report 7675011-3 (Version None)
Quarter: 2011Q3

REPORT INFORMATION
  Report Type: 
  Country: None (occurrence: None)
  Receive Date: 20110810
  Receipt Date: 20110803
  Transmission Date: 20111222
  Serious: Yes (Death, Other)
  Sender: FDA-Public Use
  Company Number: US-BAYER-201041740NA

PATIENT
  Age: 3 Year
  Sex: Male
  Weight: 10 kg

DRUGS (30)
  1. CAPTOPRIL [Concomitant]
     Dosage: 1.5 MG, TID
     Route: 048
  2. PANCURONIUM [Concomitant]
     Dosage: 1 CC, UNK
     Route: 042
     Dates: start: 20050421, end: 20050421
  3. HEPARIN [Concomitant]
     Dosage: 4000 UNITS, UNK
     Route: 042
     Dates: start: 20050421, end: 20050421
  4. ALBUMIN (HUMAN) [Concomitant]
     Dosage: 220, UNK
     Route: 042
     Dates: start: 20050421, end: 20050421
  5. VANCOMYCIN [Concomitant]
     Dosage: 160 MG, UNK
     Route: 042
     Dates: start: 20050421, end: 20050421
  6. PLASMALYTE [GLUCOSE,POTASSIUM CHLORIDE] [Concomitant]
     Dosage: 100ML BYPASS FLUIDS
     Dates: start: 20050421, end: 20050421
  7. LACTATED RINGER'S [Concomitant]
     Dosage: UNK
     Route: 042
     Dates: start: 20050421, end: 20050421
  8. BACTRIM [Concomitant]
  9. PANCURONIUM [Concomitant]
     Dosage: 2 MG, UNK
     Route: 042
     Dates: start: 20050421, end: 20050421
  10. SOLU-MEDROL [Concomitant]
     Dosage: 250 MG PUMP PRIME
     Dates: start: 20050421, end: 20050421
  11. RED BLOOD CELLS [Concomitant]
     Dosage: 125ML BYPASS FLUIDS
     Dates: start: 20050421, end: 20050421
  12. TRASYLOL [Suspect]
     Dosage: 87 ML LOADING DOSE, UNK
     Route: 042
     Dates: start: 20050421, end: 20050421
  13. SEVOFLURANE [Concomitant]
     Dosage: 8.2 MG, UNK
     Route: 007
     Dates: start: 20050421, end: 20050421
  14. BICARBONAT [Concomitant]
     Dosage: 5 MEQ, UNK
     Route: 042
     Dates: start: 20050421, end: 20050421
  15. CARDIOPLEGIA [Concomitant]
     Dosage: 2350 ML BYPASS FLUIDS
     Dates: start: 20050421, end: 20050421
  16. BICARBONAT [Concomitant]
     Dosage: 15 MEQ PUMP PRIME
     Dates: start: 20050421, end: 20050421
  17. RED BLOOD CELLS [Concomitant]
     Dosage: 125 ML PUMP PRIME
     Dates: start: 20050421, end: 20050421
  18. AMIODARONE HCL [Concomitant]
     Dosage: UNK
     Route: 042
     Dates: start: 20050421
  19. TRASYLOL [Suspect]
     Dosage: INFUSION 20 CC/HR TEST DOSE, UNK
     Route: 042
     Dates: start: 20050421, end: 20050421
  20. LOVENOX [Concomitant]
  21. HEPARIN [Concomitant]
     Dosage: 5000 UNITS PUMP PRIME
     Route: 042
     Dates: start: 20050421, end: 20050421
  22. PROTAMINE [Concomitant]
     Dosage: 70 MG, UNK
     Route: 042
     Dates: start: 20050421, end: 20050421
  23. EPINEPHRINE [Concomitant]
     Dosage: 0.05, UNK
     Route: 042
     Dates: start: 20050421
  24. PAVULON [Concomitant]
     Dosage: 2, UNK
     Route: 042
     Dates: start: 20050421
  25. DOPAMINE HCL [Concomitant]
     Dosage: 5MCG/KG/HR, UNK
     Route: 042
     Dates: start: 20050421
  26. CALCIUM GLUCONATE [Concomitant]
     Dosage: 400 MG PUMP PRIME
     Dates: start: 20050421, end: 20050421
  27. TRASYLOL [Suspect]
     Indication: SYSTEMIC-PULMONARY ARTERY SHUNT
     Dosage: 87 ML TEST DOSE, UNK
     Route: 042
     Dates: start: 20050421, end: 20050421
  28. FENTANYL [Concomitant]
     Dosage: 100MG DOSE THEN 5MCG/KG/HR
     Route: 042
     Dates: start: 20050421, end: 20050421
  29. MANNITOL [Concomitant]
     Dosage: 10.5 GM PUMP PRIME
     Dates: start: 20050421, end: 20050421
  30. ALBUMIN (HUMAN) [Concomitant]
     Dosage: 200 ML PUMP PRIME
     Dates: start: 20050421, end: 20050421

REACTIONS (11)
  - RENAL IMPAIRMENT [None]
  - RENAL INJURY [None]
  - UNEVALUABLE EVENT [None]
  - FEAR [None]
  - DEATH [None]
  - MULTI-ORGAN FAILURE [None]
  - RENAL FAILURE [None]
  - STRESS [None]
  - ANXIETY [None]
  - EMOTIONAL DISTRESS [None]
  - PAIN [None]
